FAERS Safety Report 5099025-5 (Version None)
Quarter: 2006Q3

REPORT INFORMATION
  Report Type: 
  Country: None (occurrence: None)
  Receive Date: 20060907
  Receipt Date: 20060831
  Transmission Date: 20061208
  Serious: Yes (Life-Threatening, Hospitalization)
  Sender: FDA-Public Use
  Company Number: JP-ABBOTT-06P-087-0342971-00

PATIENT
  Sex: Male

DRUGS (8)
  1. KALETRA [Suspect]
     Indication: HIV INFECTION
     Route: 048
     Dates: start: 20050401, end: 20050727
  2. KALETRA [Suspect]
     Route: 048
     Dates: start: 20050824
  3. STAVUDINE [Suspect]
     Indication: HIV INFECTION
     Route: 048
     Dates: start: 20050401, end: 20050727
  4. LAMIVUDINE [Concomitant]
     Indication: HIV INFECTION
     Route: 048
     Dates: start: 20050401, end: 20050727
  5. LAMIVUDINE [Concomitant]
     Route: 048
     Dates: start: 20050824
  6. TENOFOVIR [Concomitant]
     Indication: HIV INFECTION
     Route: 048
     Dates: start: 20050824
  7. RITONAVIR [Concomitant]
     Indication: HIV INFECTION
     Dates: start: 20050401
  8. ATAZANAVIR [Concomitant]
     Indication: HIV INFECTION
     Dates: start: 20050401

REACTIONS (4)
  - DEPRESSED LEVEL OF CONSCIOUSNESS [None]
  - HYPERLACTACIDAEMIA [None]
  - MALAISE [None]
  - TACHYPNOEA [None]
